FAERS Safety Report 5709862-9 (Version None)
Quarter: 2008Q2

REPORT INFORMATION
  Report Type: 
  Country: None (occurrence: None)
  Receive Date: 20080418
  Receipt Date: 20070308
  Transmission Date: 20081010
  Serious: No
  Sender: FDA-Public Use
  Company Number: US-ASTRAZENECA-2007UW04369

PATIENT
  Age: 63 Year
  Sex: Male
  Weight: 96.2 kg

DRUGS (5)
  1. TOPROL-XL [Suspect]
     Indication: ARRHYTHMIA
     Route: 048
  2. TOPROL-XL [Suspect]
     Indication: HYPERTENSION
     Route: 048
  3. VALIUM [Concomitant]
  4. DOXYCYCLINE [Concomitant]
  5. LEXAPRO [Concomitant]

REACTIONS (3)
  - DIZZINESS [None]
  - HYPOAESTHESIA [None]
  - PARAESTHESIA [None]
